FAERS Safety Report 9290291 (Version 1)
Quarter: 2013Q2

REPORT INFORMATION
  Report Type: Spontaneous
  Country: US (occurrence: None)
  Receive Date: 20130514
  Receipt Date: 20130514
  Transmission Date: 20140414
  Serious: Yes (Disabling)
  Sender: FDA-Public Use
  Company Number: None

PATIENT
  Age: 59 Year
  Sex: Female
  Weight: 63.05 kg

DRUGS (1)
  1. VIVELLE [Suspect]
     Indication: MENOPAUSE
     Dosage: 1 PATCH WEEKLY TOP
     Route: 061
     Dates: start: 20110301, end: 20110315

REACTIONS (1)
  - Scar [None]
